FAERS Safety Report 8792565 (Version 2)
Quarter: 2015Q3

REPORT INFORMATION
  Report Type: Report from Study
  Country: US (occurrence: US)
  Receive Date: 20120918
  Receipt Date: 20150703
  Transmission Date: 20151125
  Serious: Yes (Death)
  Sender: FDA-Public Use
  Company Number: US-ROCHE-1125918

PATIENT
  Sex: Female
  Weight: 65.15 kg

DRUGS (38)
  1. BENADRYL [Concomitant]
     Active Substance: DIPHENHYDRAMINE HYDROCHLORIDE
     Route: 042
  2. ARANESP [Concomitant]
     Active Substance: DARBEPOETIN ALFA
     Indication: ANAEMIA
     Route: 058
  3. FENTANYL. [Concomitant]
     Active Substance: FENTANYL
     Route: 061
  4. LYRICA [Concomitant]
     Active Substance: PREGABALIN
     Route: 048
  5. METHADONE [Concomitant]
     Active Substance: METHADONE HYDROCHLORIDE
     Route: 048
  6. DECADRON [Concomitant]
     Active Substance: DEXAMETHASONE
     Route: 042
  7. DILAUDID [Concomitant]
     Active Substance: HYDROMORPHONE HYDROCHLORIDE
     Dosage: ONCE 3-4 HRS P.R.N
     Route: 042
  8. VICODIN [Concomitant]
     Active Substance: ACETAMINOPHEN\HYDROCODONE BITARTRATE
  9. AVASTIN [Suspect]
     Active Substance: BEVACIZUMAB
     Indication: BREAST CANCER
     Dosage: 09/OCT/2007, 23/OCT/2007, 07/NOV/2007, 20/NOV/2007, 04/DEC/2007, 28/DEC/2007, 11/JAN/2008, 22/JAN/20
     Route: 042
  10. ARANESP [Concomitant]
     Active Substance: DARBEPOETIN ALFA
     Route: 058
  11. ALOXI [Concomitant]
     Active Substance: PALONOSETRON HYDROCHLORIDE
     Route: 042
  12. ULTRAM [Concomitant]
     Active Substance: TRAMADOL HYDROCHLORIDE
     Dosage: PRN
     Route: 065
  13. OPANA ER [Concomitant]
     Active Substance: OXYMORPHONE HYDROCHLORIDE
     Dosage: ONCE 3-4 HRS PRN
     Route: 048
  14. LOMOTIL (UNITED STATES) [Concomitant]
  15. LOTREL [Concomitant]
     Active Substance: AMLODIPINE BESYLATE\BENAZEPRIL HYDROCHLORIDE
     Dosage: 10/20 MG
     Route: 065
  16. ZOFRAN [Concomitant]
     Active Substance: ONDANSETRON HYDROCHLORIDE
     Dosage: PRN
     Route: 065
  17. AVANDIA [Concomitant]
     Active Substance: ROSIGLITAZONE MALEATE
     Route: 065
  18. HERCEPTIN [Suspect]
     Active Substance: TRASTUZUMAB
     Dosage: 03/JUL/2007, 10/JUL/2007, 17/JUL/2007, 24/JUL/2007, 31/JUL/2007, 07/AUG/2007, 21/AUG/2007, 28/AUG/20
     Route: 042
  19. TYLENOL [Concomitant]
     Active Substance: ACETAMINOPHEN
     Route: 048
  20. ZOMETA [Concomitant]
     Active Substance: ZOLEDRONIC ACID
     Route: 042
  21. IMODIUM [Concomitant]
     Active Substance: LOPERAMIDE HYDROCHLORIDE
  22. PHENERGAN [Concomitant]
     Active Substance: PROMETHAZINE HYDROCHLORIDE
     Dosage: PRN
     Route: 065
  23. ARIMIDEX [Concomitant]
     Active Substance: ANASTROZOLE
  24. FENTANYL. [Concomitant]
     Active Substance: FENTANYL
     Route: 061
  25. COUMADIN [Concomitant]
     Active Substance: WARFARIN SODIUM
     Route: 065
  26. CARBOPLATIN. [Concomitant]
     Active Substance: CARBOPLATIN
  27. AVASTIN [Suspect]
     Active Substance: BEVACIZUMAB
     Dosage: 17/JUL/2007, 31/JUL/2007, 28/AUG/2007, 11/SEP/2007, 25/SEP/2007
     Route: 042
     Dates: start: 20070703
  28. HERCEPTIN [Suspect]
     Active Substance: TRASTUZUMAB
     Indication: BREAST CANCER
     Dosage: 02/OCT/2007, 09/OCT/2007, 16/OCT/2007, 23/OCT/2007, 07/NOV/2007, 20/NOV/2007, 27/NOV/2007, 04/DEC/20
     Route: 042
  29. FENTANYL. [Concomitant]
     Active Substance: FENTANYL
     Route: 061
  30. LEVAQUIN [Concomitant]
     Active Substance: LEVOFLOXACIN
     Route: 048
  31. EFFEXOR [Concomitant]
     Active Substance: VENLAFAXINE HYDROCHLORIDE
     Route: 065
  32. TAXOL [Concomitant]
     Active Substance: PACLITAXEL
  33. TAXOTERE [Concomitant]
     Active Substance: DOCETAXEL
     Route: 042
  34. TAXOTERE [Concomitant]
     Active Substance: DOCETAXEL
     Route: 042
  35. METHADONE [Concomitant]
     Active Substance: METHADONE HYDROCHLORIDE
     Route: 065
  36. SANDOSTATIN [Concomitant]
     Active Substance: OCTREOTIDE ACETATE
     Route: 065
  37. MEGACE [Concomitant]
     Active Substance: MEGESTROL ACETATE
     Route: 065
  38. GABAPENTIN. [Concomitant]
     Active Substance: GABAPENTIN
     Route: 065

REACTIONS (27)
  - Depression [Unknown]
  - Hypokalaemia [Unknown]
  - Activities of daily living impaired [Unknown]
  - Back pain [Unknown]
  - Alopecia [Unknown]
  - Hypoaesthesia [Unknown]
  - Paraesthesia [Unknown]
  - Anaemia [Unknown]
  - Off label use [Unknown]
  - Diarrhoea [Unknown]
  - Vomiting [Unknown]
  - Oedema [Unknown]
  - Decreased appetite [Unknown]
  - Dyspnoea exertional [Unknown]
  - Death [Fatal]
  - Fatigue [Unknown]
  - Nausea [Unknown]
  - Abdominal pain [Unknown]
  - Malaise [Unknown]
  - Neuropathy peripheral [Unknown]
  - Weight decreased [Unknown]
  - Asthenia [Unknown]
  - Drug dose omission [Unknown]
  - Arthralgia [Unknown]
  - Abdominal tenderness [Unknown]
  - Metastases to bone [Unknown]
  - Hypertension [Unknown]
